FAERS Safety Report 19455353 (Version 2)
Quarter: 2021Q3

REPORT INFORMATION
  Report Type: Report from Study
  Country: CO (occurrence: CO)
  Receive Date: 20210623
  Receipt Date: 20210803
  Transmission Date: 20211014
  Serious: Yes (Other)
  Sender: FDA-Public Use
  Company Number: NVSC2021CO113563

PATIENT
  Sex: Female
  Weight: 58 kg

DRUGS (3)
  1. LANTUS [Concomitant]
     Active Substance: INSULIN GLARGINE
     Indication: DIABETES MELLITUS
     Dosage: 30 UNIT, Q12H
     Route: 058
     Dates: start: 2014
  2. LEVOTHYROXINE. [Concomitant]
     Active Substance: LEVOTHYROXINE
     Indication: THYROID DISORDER
     Dosage: 125 MG, QD
     Route: 048
     Dates: start: 2015
  3. COSENTYX [Suspect]
     Active Substance: SECUKINUMAB
     Indication: PSORIATIC ARTHROPATHY
     Dosage: 300 MG, QMO
     Route: 058
     Dates: start: 2016

REACTIONS (7)
  - Trigger finger [Unknown]
  - Paralysis [Unknown]
  - Psoriatic arthropathy [Unknown]
  - Muscle rigidity [Unknown]
  - Psoriasis [Recovered/Resolved]
  - Pain [Unknown]
  - Pain in extremity [Unknown]
